FAERS Safety Report 8158961-3 (Version None)
Quarter: 2012Q1

REPORT INFORMATION
  Report Type: 
  Country: None (occurrence: None)
  Receive Date: 20120223
  Receipt Date: 20120209
  Transmission Date: 20120608
  Serious: Yes (Hospitalization)
  Sender: FDA-Public Use
  Company Number: ES-CELGENEUS-144-50794-12021170

PATIENT
  Sex: Male
  Weight: 82.5 kg

DRUGS (2)
  1. VIDAZA [Suspect]
     Route: 050
     Dates: start: 20090914
  2. VIDAZA [Suspect]
     Route: 050
     Dates: start: 20091125

REACTIONS (4)
  - AORTIC VALVE REPAIR [None]
  - PRESYNCOPE [None]
  - LOBAR PNEUMONIA [None]
  - HERPES ZOSTER [None]
